FAERS Safety Report 6213891-9 (Version None)
Quarter: 2009Q2

REPORT INFORMATION
  Report Type: 
  Country: None (occurrence: None)
  Receive Date: 20090602
  Receipt Date: 20090602
  Transmission Date: 20091009
  Serious: Yes (Other)
  Sender: FDA-Public Use
  Company Number: None

PATIENT
  Age: 53 Year
  Sex: Female
  Weight: 71.6683 kg

DRUGS (2)
  1. CELEXA [Suspect]
     Dosage: 40MG
  2. XANAX [Suspect]

REACTIONS (7)
  - AGITATION [None]
  - DRUG INEFFECTIVE [None]
  - DRUG INTERACTION [None]
  - INSOMNIA [None]
  - ORAL DISCOMFORT [None]
  - ORAL DISORDER [None]
  - TREMOR [None]
